FAERS Safety Report 25422800 (Version 1)
Quarter: 2025Q2

REPORT INFORMATION
  Report Type: Report from Study
  Country: US (occurrence: US)
  Receive Date: 20250611
  Receipt Date: 20250611
  Transmission Date: 20250716
  Serious: Yes (Other)
  Sender: TAKEDA
  Company Number: US-TAKEDA-2025TUS006626

PATIENT
  Sex: Male

DRUGS (23)
  1. FRUQUINTINIB [Suspect]
     Active Substance: FRUQUINTINIB
     Indication: Colon cancer
  2. FRUQUINTINIB [Suspect]
     Active Substance: FRUQUINTINIB
     Indication: Colon cancer stage IV
  3. FRUQUINTINIB [Suspect]
     Active Substance: FRUQUINTINIB
     Dosage: 5 MILLIGRAM, Q12H
  4. TYLENOL [Concomitant]
     Active Substance: ACETAMINOPHEN
  5. AZITHROMYCIN [Concomitant]
     Active Substance: AZITHROMYCIN
  6. BACTRIM [Concomitant]
     Active Substance: SULFAMETHOXAZOLE\TRIMETHOPRIM
  7. DEXAMETHASONE [Concomitant]
     Active Substance: DEXAMETHASONE
  8. Dulcolax [Concomitant]
  9. FAMOTIDINE [Concomitant]
     Active Substance: FAMOTIDINE
  10. GABAPENTIN [Concomitant]
     Active Substance: GABAPENTIN
  11. LEVOTHYROXINE [Concomitant]
     Active Substance: LEVOTHYROXINE
  12. LOMOTIL [Concomitant]
     Active Substance: ATROPINE SULFATE\DIPHENOXYLATE HYDROCHLORIDE
  13. LOPERAMIDE [Concomitant]
     Active Substance: LOPERAMIDE
  14. MIRALAX [Concomitant]
     Active Substance: POLYETHYLENE GLYCOL 3350
  15. NITROFURANTOIN [Concomitant]
     Active Substance: NITROFURANTOIN
  16. NYSTATIN [Concomitant]
     Active Substance: NYSTATIN
  17. OMEPRAZOLE [Concomitant]
     Active Substance: OMEPRAZOLE
  18. ZOFRAN [Concomitant]
     Active Substance: ONDANSETRON HYDROCHLORIDE
  19. OXYCODONE [Concomitant]
     Active Substance: OXYCODONE
  20. XARELTO [Concomitant]
     Active Substance: RIVAROXABAN
  21. VALACYCLOVIR [Concomitant]
     Active Substance: VALACYCLOVIR HYDROCHLORIDE
  22. ONDANSETRON [Concomitant]
     Active Substance: ONDANSETRON
  23. ACETAMINOPHEN [Concomitant]
     Active Substance: ACETAMINOPHEN

REACTIONS (9)
  - Neuropathy peripheral [Unknown]
  - Sluggishness [Not Recovered/Not Resolved]
  - Laziness [Recovering/Resolving]
  - Appetite disorder [Recovering/Resolving]
  - Nausea [Unknown]
  - Fatigue [Unknown]
  - Pain in extremity [Recovering/Resolving]
  - Diarrhoea [Not Recovered/Not Resolved]
  - Asthenia [Not Recovered/Not Resolved]
